FAERS Safety Report 24202101 (Version 1)
Quarter: 2024Q3

REPORT INFORMATION
  Report Type: Spontaneous
  Country: JP (occurrence: JP)
  Receive Date: 20240812
  Receipt Date: 20240812
  Transmission Date: 20241016
  Serious: Yes (Hospitalization, Other)
  Sender: BRISTOL MYERS SQUIBB
  Company Number: JP-ONO-2024JP016324

PATIENT
  Age: 7 Decade
  Sex: Male

DRUGS (3)
  1. OPDIVO [Suspect]
     Active Substance: NIVOLUMAB
     Indication: Gastric cancer
     Dosage: UNK
     Route: 042
  2. TS-1 [Suspect]
     Active Substance: GIMERACIL\OTERACIL POTASSIUM\TEGAFUR
     Indication: Gastric cancer
  3. OXALIPLATIN [Suspect]
     Active Substance: OXALIPLATIN
     Indication: Gastric cancer
     Dosage: UNK

REACTIONS (7)
  - Eastern Cooperative Oncology Group performance status worsened [Recovering/Resolving]
  - Decreased appetite [Recovering/Resolving]
  - Abulia [Recovering/Resolving]
  - Movement disorder [Unknown]
  - Hypoglycaemia [Recovering/Resolving]
  - Febrile neutropenia [Unknown]
  - Adrenocorticotropic hormone deficiency [Unknown]
